FAERS Safety Report 4371832-3 (Version None)
Quarter: 2004Q2

REPORT INFORMATION
  Report Type: 
  Country: None (occurrence: None)
  Receive Date: 20040604
  Receipt Date: 20040604
  Transmission Date: 20050107
  Serious: Yes (Hospitalization)
  Sender: FDA-Public Use
  Company Number: None

PATIENT
  Sex: Male
  Weight: 141.0687 kg

DRUGS (5)
  1. ESTRAMUSTINE PHOSPHATE 140 MG PHARMACIA [Suspect]
     Indication: PROSTATE CANCER
     Dosage: 140 MG TID/PROTOC ORAL
     Route: 048
     Dates: start: 20040226, end: 20040521
  2. PACLITAXEL [Suspect]
     Indication: PROSTATE CANCER
     Dosage: 90 MG/-M- PROTOCOL IV
     Route: 042
     Dates: start: 20040227, end: 20040507
  3. CELEBREX [Concomitant]
  4. PACLITAXEL [Concomitant]
  5. ENCYT [Concomitant]

REACTIONS (12)
  - ATAXIA [None]
  - ATRIOVENTRICULAR BLOCK FIRST DEGREE [None]
  - BUNDLE BRANCH BLOCK RIGHT [None]
  - CARDIAC FAILURE CONGESTIVE [None]
  - DIABETIC NEUROPATHY [None]
  - DRUG TOXICITY [None]
  - ELECTROCARDIOGRAM QRS COMPLEX PROLONGED [None]
  - GAIT DISTURBANCE [None]
  - METABOLIC DISORDER [None]
  - PERIPHERAL SENSORY NEUROPATHY [None]
  - PULMONARY HYPERTENSION [None]
  - TRANSIENT ISCHAEMIC ATTACK [None]
